FAERS Safety Report 9049001 (Version 1)
Quarter: 2013Q1

REPORT INFORMATION
  Report Type: Spontaneous
  Country: DK (occurrence: None)
  Receive Date: 20130117
  Receipt Date: 20130117
  Transmission Date: 20140127
  Serious: Yes (Hospitalization)
  Sender: FDA-Public Use
  Company Number: 2013MA000417

PATIENT
  Sex: Male

DRUGS (5)
  1. RANITIDINE SYRUP (RANITIDINE ORAL SOLUTION USP), 15 MG/ML (MALLC) (RANITIDINE) [Suspect]
     Indication: GASTROOESOPHAGEAL REFLUX DISEASE
  2. DOMEPRIDONE [Concomitant]
  3. METOCLOPRAMINE [Concomitant]
  4. ESOMEPRAZOLE [Concomitant]
  5. GAVISCON [Concomitant]

REACTIONS (2)
  - No therapeutic response [None]
  - Pneumonia aspiration [None]
